FAERS Safety Report 12256377 (Version 6)
Quarter: 2016Q3

REPORT INFORMATION
  Report Type: Spontaneous
  Country: US (occurrence: US)
  Receive Date: 20160412
  Receipt Date: 20160909
  Transmission Date: 20161109
  Serious: Yes (Hospitalization, Disabling, Other)
  Sender: FDA-Public Use
  Company Number: US-009507513-1604USA002136

PATIENT
  Sex: Female
  Weight: 66.67 kg

DRUGS (10)
  1. FOSAMAX [Suspect]
     Active Substance: ALENDRONATE SODIUM
     Indication: OSTEOPOROSIS
     Dosage: 70 MG, QW
     Route: 048
     Dates: start: 20001220, end: 20080516
  2. LIPITOR [Concomitant]
     Active Substance: ATORVASTATIN CALCIUM
     Indication: BLOOD CHOLESTEROL INCREASED
     Dosage: 10 MG, QD
     Route: 065
     Dates: start: 1994
  3. FOSAMAX PLUS D [Suspect]
     Active Substance: ALENDRONATE SODIUM\CHOLECALCIFEROL
     Indication: OSTEOPOROSIS
     Dosage: 70 MG, QW
     Route: 048
     Dates: start: 20070312, end: 20080728
  4. ALENDRONATE SODIUM. [Suspect]
     Active Substance: ALENDRONATE SODIUM
     Indication: OSTEOPOROSIS
     Dosage: 70 MG, UNKNOWN
     Route: 048
     Dates: start: 20080729, end: 20140126
  5. HYDROCHLOROTHIAZIDE (+) TRIAMTERENE [Concomitant]
     Active Substance: HYDROCHLOROTHIAZIDE\TRIAMTERENE
     Indication: BLOOD PRESSURE MEASUREMENT
     Dosage: UNK, UNKNOWN
     Route: 065
     Dates: start: 1996
  6. LOTREL [Concomitant]
     Active Substance: AMLODIPINE BESYLATE\BENAZEPRIL HYDROCHLORIDE
     Indication: HYPERTENSION
     Dosage: 10 MG -20 MG, QD
     Route: 048
     Dates: start: 1997
  7. FOSAMAX [Suspect]
     Active Substance: ALENDRONATE SODIUM
     Dosage: 10 MG, QD
     Route: 048
     Dates: start: 19990526, end: 20001115
  8. ALENDRONATE SODIUM. [Suspect]
     Active Substance: ALENDRONATE SODIUM
     Indication: OSTEOPOROSIS
     Dosage: 70 MG, QW
     Route: 048
     Dates: start: 20080729, end: 20140715
  9. CITRACAL + D [Concomitant]
     Active Substance: CALCIUM CITRATE\VITAMIN D
     Indication: VITAMIN SUPPLEMENTATION
     Dosage: 2 CAP, BID
     Route: 065
     Dates: start: 1998
  10. FOSAMAX [Suspect]
     Active Substance: ALENDRONATE SODIUM
     Dosage: UNK
     Route: 048
     Dates: start: 20140129

REACTIONS (39)
  - Deafness [Unknown]
  - Fracture nonunion [Unknown]
  - Depression [Unknown]
  - Anaemia [Unknown]
  - Bone disorder [Unknown]
  - Fall [Unknown]
  - Sinus tachycardia [Recovered/Resolved]
  - Urinary retention [Unknown]
  - Sleep apnoea syndrome [Unknown]
  - Bone lesion [Unknown]
  - Osteoarthritis [Unknown]
  - Joint arthroplasty [Unknown]
  - Femur fracture [Not Recovered/Not Resolved]
  - Neuroma [Unknown]
  - Anxiety [Unknown]
  - Oral surgery [Unknown]
  - Hypertensive nephropathy [Unknown]
  - Transfusion [Unknown]
  - Femur fracture [Not Recovered/Not Resolved]
  - Foot fracture [Unknown]
  - Hypoaesthesia [Unknown]
  - Chronic kidney disease [Unknown]
  - Hysterectomy [Unknown]
  - Memory impairment [Unknown]
  - Constipation [Unknown]
  - Skin cancer [Unknown]
  - Nocturia [Unknown]
  - Joint swelling [Unknown]
  - Arthritis [Unknown]
  - Bladder spasm [Unknown]
  - Knee arthroplasty [Unknown]
  - Facial paralysis [Unknown]
  - Rhinitis allergic [Unknown]
  - Surgery [Unknown]
  - Trigger finger [Unknown]
  - Diarrhoea [Unknown]
  - Back pain [Unknown]
  - Gastrooesophageal reflux disease [Unknown]
  - Acute kidney injury [Recovered/Resolved]

NARRATIVE: CASE EVENT DATE: 200405
